FAERS Safety Report 24424675 (Version 4)
Quarter: 2024Q4

REPORT INFORMATION
  Report Type: Spontaneous
  Country: US (occurrence: US)
  Receive Date: 20241010
  Receipt Date: 20241017
  Transmission Date: 20250114
  Serious: Yes (Hospitalization, Other)
  Sender: IPSEN BIOPHARMACEUTICALS, INC.
  Company Number: US-IPSEN Group, Research and Development-2024-20114

PATIENT
  Sex: Female

DRUGS (4)
  1. DYSPORT [Suspect]
     Active Substance: ABOBOTULINUMTOXINA
     Indication: Skin wrinkling
     Dosage: TOTAL 47 UNITS INJECTED, GLABELLAR 11 UNITS, FRONTALIS 12 UNITS, BILATERAL CROWS FEET 24 UNITS 12 UN
     Route: 050
     Dates: start: 20240703, end: 20240703
  2. DYSPORT [Suspect]
     Active Substance: ABOBOTULINUMTOXINA
     Indication: Skin wrinkling
  3. DYSPORT [Suspect]
     Active Substance: ABOBOTULINUMTOXINA
     Indication: Off label use
  4. DYSPORT [Suspect]
     Active Substance: ABOBOTULINUMTOXINA
     Indication: Skin wrinkling

REACTIONS (5)
  - Muscular weakness [Unknown]
  - Sinusitis [Unknown]
  - Myasthenia gravis [Unknown]
  - Eyelid ptosis [Not Recovered/Not Resolved]
  - Off label use [Unknown]

NARRATIVE: CASE EVENT DATE: 20240829
